FAERS Safety Report 18179620 (Version 2)
Quarter: 2021Q4

REPORT INFORMATION
  Report Type: Other
  Country: CA (occurrence: CA)
  Receive Date: 20200820
  Receipt Date: 20211001
  Transmission Date: 20220304
  Serious: Yes (Hospitalization, Other)
  Sender: FDA-Public Use
  Company Number: CA-TITAN PHARMACEUTICALS-2020TAN00051

PATIENT
  Sex: Female

DRUGS (8)
  1. BUPRENORPHINE [Suspect]
     Active Substance: BUPRENORPHINE
     Indication: Drug dependence
     Dosage: 16 MG, 1X/DAY
  2. BUPRENORPHINE [Suspect]
     Active Substance: BUPRENORPHINE
     Indication: Drug dependence
     Dosage: 16 MG, 1X/DAY
  3. ABILIFY [Suspect]
     Active Substance: ARIPIPRAZOLE
     Indication: Product used for unknown indication
     Dosage: 5 MG, 1X/DAY
  4. DIAZEPAM [Suspect]
     Active Substance: DIAZEPAM
     Indication: Product used for unknown indication
     Dosage: 40 MG, 1X/DAY
  5. NALOXONE HYDROCHLORIDE [Suspect]
     Active Substance: NALOXONE HYDROCHLORIDE
     Indication: Drug dependence
     Dosage: 22 MG, 1X/DAY
  6. NALOXONE HYDROCHLORIDE [Suspect]
     Active Substance: NALOXONE HYDROCHLORIDE
     Indication: Drug dependence
     Dosage: 22 MG, 1X/DAY
  7. NICOTINE [Suspect]
     Active Substance: NICOTINE
     Indication: Product used for unknown indication
     Dosage: UNK
  8. VYVANSE [Suspect]
     Active Substance: LISDEXAMFETAMINE DIMESYLATE
     Indication: Product used for unknown indication
     Dosage: 10 MG, 1X/DAY

REACTIONS (7)
  - Breech presentation [Recovered/Resolved]
  - Premature delivery [Recovered/Resolved]
  - Caesarean section [Recovered/Resolved]
  - Rhesus incompatibility [Recovered/Resolved]
  - Transfusion [Recovered/Resolved]
  - Product use issue [Recovered/Resolved]
  - Maternal exposure during pregnancy [Recovered/Resolved]
